FAERS Safety Report 4915159-7 (Version None)
Quarter: 2006Q1

REPORT INFORMATION
  Report Type: 
  Country: None (occurrence: None)
  Receive Date: 20060217
  Receipt Date: 20051230
  Transmission Date: 20060701
  Serious: Yes (Other)
  Sender: FDA-Public Use
  Company Number: US-GILEAD-2006-0009056

PATIENT
  Sex: Female
  Weight: 13.2 kg

DRUGS (1)
  1. ADEFOVIR DIPIVOXIL [Suspect]
     Indication: HEPATITIS B
     Route: 048
     Dates: start: 20050118

REACTIONS (4)
  - ALANINE AMINOTRANSFERASE INCREASED [None]
  - ASPARTATE AMINOTRANSFERASE INCREASED [None]
  - CONDITION AGGRAVATED [None]
  - HEPATIC ENZYME INCREASED [None]
